FAERS Safety Report 22376863 (Version 1)
Quarter: 2023Q2

REPORT INFORMATION
  Report Type: Spontaneous
  Country: FR (occurrence: FR)
  Receive Date: 20230529
  Receipt Date: 20230529
  Transmission Date: 20230722
  Serious: Yes (Other)
  Sender: FDA-Public Use
  Company Number: FR-RECORDATI-2023000840

PATIENT
  Age: 54 Year
  Sex: Female
  Weight: 74 kg

DRUGS (8)
  1. NEBIVOLOL [Suspect]
     Active Substance: NEBIVOLOL
     Indication: Product used for unknown indication
     Dosage: UNK
     Route: 065
  2. METHADONE HYDROCHLORIDE [Suspect]
     Active Substance: METHADONE HYDROCHLORIDE
     Indication: Cancer pain
     Dosage: 200 MILLIGRAM, ONCE A DAY (200 MILLIGRAM, QD)
     Route: 048
     Dates: start: 20230219, end: 20230219
  3. METHADONE HYDROCHLORIDE [Suspect]
     Active Substance: METHADONE HYDROCHLORIDE
     Dosage: 250 MILLIGRAM, ONCE A DAY (250 MILLIGRAM, QD)
     Route: 048
     Dates: start: 20230218, end: 20230218
  4. METHADONE HYDROCHLORIDE [Suspect]
     Active Substance: METHADONE HYDROCHLORIDE
     Dosage: 150 MILLIGRAM, ONCE A DAY (150 MILLIGRAM, QD)
     Route: 048
     Dates: start: 20230220, end: 20230220
  5. METHADONE HYDROCHLORIDE [Suspect]
     Active Substance: METHADONE HYDROCHLORIDE
     Dosage: 120 MILLIGRAM, ONCE A DAY (120 MILLIGRAM, QD)
     Route: 048
     Dates: start: 20230215, end: 20230215
  6. METHADONE HYDROCHLORIDE [Suspect]
     Active Substance: METHADONE HYDROCHLORIDE
     Dosage: 160 MILLIGRAM, ONCE A DAY (160 MILLIGRAM, QD)
     Route: 048
     Dates: start: 20230216, end: 20230216
  7. METHADONE HYDROCHLORIDE [Suspect]
     Active Substance: METHADONE HYDROCHLORIDE
     Dosage: 300 MILLIGRAM, ONCE A DAY (300 MILLIGRAM, QD)
     Route: 065
     Dates: start: 20230217
  8. OXYCODONE [Concomitant]
     Active Substance: OXYCODONE
     Indication: Cancer pain
     Dosage: 192 MILLIGRAM, ONCE A DAY (192 MILLIGRAM, QD)
     Route: 042
     Dates: start: 20230130, end: 20230214

REACTIONS (7)
  - Bacteraemia [Not Recovered/Not Resolved]
  - Pruritus [Not Recovered/Not Resolved]
  - Somnolence [Recovered/Resolved]
  - Constipation [Recovered/Resolved]
  - Nausea [Recovered/Resolved]
  - Dry mouth [Not Recovered/Not Resolved]
  - Vomiting [Recovered/Resolved]

NARRATIVE: CASE EVENT DATE: 20230201
